FAERS Safety Report 13438667 (Version 2)
Quarter: 2017Q3

REPORT INFORMATION
  Report Type: Report from Study
  Country: GB (occurrence: GB)
  Receive Date: 20170412
  Receipt Date: 20170822
  Transmission Date: 20171127
  Serious: Yes (Hospitalization, Other)
  Sender: FDA-Public Use
  Company Number: GB-GILEAD-2017-0266148

PATIENT
  Age: 48 Year
  Sex: Male

DRUGS (2)
  1. AZTREONAM LYSINE [Suspect]
     Active Substance: AZTREONAM LYSINE
     Indication: PRODUCT USED FOR UNKNOWN INDICATION
     Dosage: 75 MG, TID
     Route: 055
     Dates: start: 201308
  2. PULMOZYME [Concomitant]
     Active Substance: DORNASE ALFA
     Indication: PRODUCT USED FOR UNKNOWN INDICATION
     Dosage: 2.5 MG, QD
     Route: 055
     Dates: start: 201308

REACTIONS (1)
  - Transplant [Unknown]
